FAERS Safety Report 6028973-4 (Version None)
Quarter: 2009Q1

REPORT INFORMATION
  Report Type: 
  Country: None (occurrence: None)
  Receive Date: 20090106
  Receipt Date: 20081231
  Transmission Date: 20090719
  Serious: Yes (Disabling, Other)
  Sender: FDA-Public Use
  Company Number: PHEH2008US11156

PATIENT
  Sex: Female
  Weight: 66.213 kg

DRUGS (9)
  1. FEMARA [Suspect]
     Indication: BREAST CANCER
     Dosage: 2.5 MG, QD
     Route: 048
     Dates: start: 20070901, end: 20081118
  2. CALCIUM [Concomitant]
     Dosage: 1500 MG, QD
     Route: 048
  3. LEVOTHYROXINE [Concomitant]
     Dosage: 100 MCG QD
     Route: 048
  4. LISINOPRIL [Concomitant]
     Dosage: 20 MG, QD
     Route: 048
  5. PROAIR HFA [Concomitant]
     Dosage: 2 PUFFS 90 MCG QID
  6. SIMVASTATIN [Concomitant]
     Dosage: 10 MG, QD
     Route: 048
  7. SPIRIVA [Concomitant]
     Dosage: UNK
  8. VERAPAMIL [Concomitant]
     Dosage: 240 MG, QD
     Route: 048
  9. VITAMIN D [Concomitant]
     Dosage: 800 MG, QD
     Route: 048

REACTIONS (5)
  - AMNESIA [None]
  - AXILLARY PAIN [None]
  - CEREBRAL ISCHAEMIA [None]
  - LUNG NEOPLASM [None]
  - MEMORY IMPAIRMENT [None]
